FAERS Safety Report 8901321 (Version 2)
Quarter: 2012Q4

REPORT INFORMATION
  Report Type: 
  Country: JP (occurrence: JP)
  Receive Date: 20121109
  Receipt Date: 20121120
  Transmission Date: 20130627
  Serious: Yes (Death, Hospitalization)
  Sender: FDA-Public Use
  Company Number: JP-ABBOTT-12P-087-1004581-00

PATIENT
  Age: 0 Year
  Sex: Female
  Weight: 7.9 kg

DRUGS (6)
  1. ULTANE [Suspect]
     Indication: GENERAL ANAESTHESIA
     Dosage: 5 %, 1.2 %
     Route: 055
     Dates: start: 20110531, end: 20110531
  2. NITROUS OXIDE [Concomitant]
     Indication: GENERAL ANAESTHESIA
     Dosage: 3 L/minute, 2 L/minute
     Route: 055
     Dates: start: 20110531, end: 20110531
  3. ROCURONIUM BROMIDE [Concomitant]
     Indication: GENERAL ANAESTHESIA
     Route: 042
     Dates: start: 20110531, end: 20110531
  4. FENTANYL CITRATE [Concomitant]
     Indication: GENERAL ANAESTHESIA
     Route: 042
     Dates: start: 20110531, end: 20110531
  5. DESMOPRESSIN ACETATE HYDRATE [Concomitant]
     Indication: HOLOPROSENCEPHALY
     Route: 045
  6. DESMOPRESSIN ACETATE HYDRATE [Concomitant]
     Indication: DIABETES INSIPIDUS

REACTIONS (3)
  - Rhabdomyolysis [Fatal]
  - Rhabdomyolysis [Fatal]
  - Hyperthermia malignant [Fatal]
